FAERS Safety Report 8173847-6 (Version None)
Quarter: 2012Q1

REPORT INFORMATION
  Report Type: 
  Country: None (occurrence: None)
  Receive Date: 20120229
  Receipt Date: 20120217
  Transmission Date: 20120608
  Serious: Yes (Hospitalization)
  Sender: FDA-Public Use
  Company Number: US-ELI_LILLY_AND_COMPANY-US201103005337

PATIENT
  Sex: Female

DRUGS (9)
  1. TYLENOL (CAPLET) [Concomitant]
     Dosage: UNK, PRN
  2. CIPRO [Concomitant]
  3. FORTEO [Suspect]
     Indication: OSTEOPOROSIS
     Dosage: 20 UG, DAILY (1/D)
     Route: 058
     Dates: start: 20100525, end: 20110301
  4. METRONIDAZOLE HYDROCHLORIDE [Concomitant]
  5. SPIRIVA [Concomitant]
  6. CITRICAL                           /00751501/ [Concomitant]
  7. FORTEO [Suspect]
     Dosage: 20 UG, QD
     Route: 065
  8. WELLBUTRIN [Concomitant]
  9. ADVAIR DISKUS 100/50 [Concomitant]

REACTIONS (3)
  - CHRONIC OBSTRUCTIVE PULMONARY DISEASE [None]
  - PNEUMONIA [None]
  - CROHN'S DISEASE [None]
